FAERS Safety Report 8156110-9 (Version None)
Quarter: 2012Q1

REPORT INFORMATION
  Report Type: 
  Country: None (occurrence: None)
  Receive Date: 20120222
  Receipt Date: 20120131
  Transmission Date: 20120608
  Serious: No
  Sender: FDA-Public Use
  Company Number: US-BAYER-2012-009927

PATIENT
  Age: 44 Year
  Sex: Male

DRUGS (2)
  1. RADIATION TREATMENT [Concomitant]
     Dosage: UNK
     Dates: start: 20120130
  2. LEUKINE [Suspect]
     Indication: ANAL CANCER
     Dosage: UNK UNK, QD
     Dates: start: 20120130

REACTIONS (5)
  - PAIN [None]
  - CHILLS [None]
  - PYREXIA [None]
  - TINNITUS [None]
  - INFLUENZA LIKE ILLNESS [None]
